FAERS Safety Report 9413663 (Version 1)
Quarter: 2013Q3

REPORT INFORMATION
  Report Type: Spontaneous
  Country: US (occurrence: US)
  Receive Date: 20130722
  Receipt Date: 20130722
  Transmission Date: 20140515
  Serious: Yes (Hospitalization, Other)
  Sender: FDA-Public Use
  Company Number: US-RB-054454-13

PATIENT
  Age: 37 Year
  Sex: Female

DRUGS (9)
  1. SUBOXONE TABLET [Suspect]
     Indication: DRUG DEPENDENCE
     Route: 060
     Dates: start: 2011, end: 2012
  2. SUBOXONE FILM [Suspect]
     Indication: DRUG DEPENDENCE
     Dosage: SUBOXONE FILM
     Route: 060
     Dates: start: 201306
  3. THREE VARIOUS ASTHMA MEDICATIONS [Concomitant]
     Indication: ASTHMA
     Dosage: DOSING DETAILS UNKNOWN
     Route: 055
     Dates: start: 1980
  4. LAMICTAL [Concomitant]
     Indication: BORDERLINE PERSONALITY DISORDER
     Dosage: DOSING DETAILS UNKNOWN
     Route: 048
     Dates: start: 1980
  5. ZOLOFT [Concomitant]
     Indication: DEPRESSION
     Dosage: DOSING DETAILS UNKNOWN
     Route: 048
     Dates: start: 1990
  6. NEURONTIN [Concomitant]
     Indication: NEURALGIA
     Dosage: DOSING DETAILS UNKNOWN
     Route: 048
     Dates: start: 1990
  7. KLONOPIN [Concomitant]
     Indication: PANIC ATTACK
     Dosage: DOSING DETAILS UNKNOWN
     Route: 048
     Dates: start: 1990
  8. TRAZADONE [Concomitant]
     Indication: BORDERLINE PERSONALITY DISORDER
     Dosage: DOSING DETAILS UNKNOWN
     Route: 048
     Dates: start: 1990
  9. TRAZADONE [Concomitant]
     Indication: BORDERLINE PERSONALITY DISORDER
     Dosage: DOSING DETAILS UNKNOWN
     Route: 048
     Dates: start: 1990

REACTIONS (5)
  - Hypersensitivity [Recovered/Resolved]
  - Candida infection [Recovered/Resolved]
  - Swollen tongue [Recovered/Resolved]
  - Pharyngeal oedema [Recovered/Resolved]
  - Off label use [Recovered/Resolved]
